FAERS Safety Report 12230743 (Version 3)
Quarter: 2016Q3

REPORT INFORMATION
  Report Type: Spontaneous
  Country: US (occurrence: US)
  Receive Date: 20160401
  Receipt Date: 20160912
  Transmission Date: 20161109
  Serious: Yes (Other)
  Sender: FDA-Public Use
  Company Number: US-JNJFOC-20160301282

PATIENT
  Age: 67 Year
  Sex: Male

DRUGS (3)
  1. COUMADIN [Suspect]
     Active Substance: WARFARIN SODIUM
     Indication: THROMBOSIS
     Dosage: IN VARYING DOSES OF 2.5 TO 3 AND 5 MG  PER DAY.
     Route: 048
  2. XARELTO [Suspect]
     Active Substance: RIVAROXABAN
     Indication: DEEP VEIN THROMBOSIS
     Route: 048
     Dates: start: 20110615, end: 20110801
  3. XARELTO [Suspect]
     Active Substance: RIVAROXABAN
     Indication: DEEP VEIN THROMBOSIS
     Route: 048
     Dates: start: 201211, end: 201212

REACTIONS (3)
  - Epistaxis [Unknown]
  - Internal haemorrhage [Unknown]
  - Pre-existing disease [Unknown]

NARRATIVE: CASE EVENT DATE: 201108
